FAERS Safety Report 7019861-5 (Version None)
Quarter: 2010Q3

REPORT INFORMATION
  Report Type: 
  Country: None (occurrence: None)
  Receive Date: 20100923
  Receipt Date: 20100608
  Transmission Date: 20110219
  Serious: Yes (Other)
  Sender: FDA-Public Use
  Company Number: US317341

PATIENT
  Sex: Female

DRUGS (2)
  1. KINERET [Suspect]
     Indication: JUVENILE ARTHRITIS
  2. CORTICOSTEROIDS [Concomitant]

REACTIONS (3)
  - ACUTE HEPATIC FAILURE [None]
  - HEPATITIS ACUTE [None]
  - INFLUENZA LIKE ILLNESS [None]
